FAERS Safety Report 11178487 (Version 2)
Quarter: 2015Q3

REPORT INFORMATION
  Report Type: Spontaneous
  Country: JP (occurrence: JP)
  Receive Date: 20150610
  Receipt Date: 20150724
  Transmission Date: 20151125
  Serious: Yes (Hospitalization)
  Sender: FDA-Public Use
  Company Number: JP-UCBSA-2015018123

PATIENT
  Sex: Female

DRUGS (3)
  1. MONTELUKAST [Concomitant]
     Active Substance: MONTELUKAST SODIUM
     Indication: PRODUCT USED FOR UNKNOWN INDICATION
     Dosage: UNK
  2. XYZAL [Suspect]
     Active Substance: LEVOCETIRIZINE DIHYDROCHLORIDE
     Indication: RHINITIS
     Dosage: UNK
     Route: 048
  3. XYZAL [Suspect]
     Active Substance: LEVOCETIRIZINE DIHYDROCHLORIDE
     Dosage: , PATIENT WAS ON AND OFF LEVOCETIRIZINE AT AN UNKNOWN DOSE
     Route: 048
     Dates: start: 201503

REACTIONS (2)
  - Treatment noncompliance [Unknown]
  - Platelet count decreased [Unknown]

NARRATIVE: CASE EVENT DATE: 2015
